FAERS Safety Report 26092457 (Version 1)
Quarter: 2025Q4

REPORT INFORMATION
  Report Type: Spontaneous
  Country: US (occurrence: None)
  Receive Date: 20251125
  Receipt Date: 20251125
  Transmission Date: 20260118
  Serious: Yes (Disabling)
  Sender: FDA-CTU
  Company Number: None

PATIENT
  Age: 30 Year
  Sex: Male
  Weight: 58.5 kg

DRUGS (1)
  1. ABSORICA [Suspect]
     Active Substance: ISOTRETINOIN
     Indication: Acne cystic
     Dosage: 1 TABLET DAILY ORAL
     Route: 048
     Dates: start: 20250915, end: 20251004

REACTIONS (1)
  - Tinnitus [None]

NARRATIVE: CASE EVENT DATE: 20251004
